FAERS Safety Report 12852623 (Version 1)
Quarter: 2016Q4

REPORT INFORMATION
  Report Type: Spontaneous
  Country: US (occurrence: US)
  Receive Date: 20161015
  Receipt Date: 20161015
  Transmission Date: 20170207
  Serious: No
  Sender: FDA-Public Use
  Company Number: None

PATIENT
  Age: 64 Year
  Sex: Female
  Weight: 63 kg

DRUGS (4)
  1. THERATEARS [Concomitant]
     Active Substance: CARBOXYMETHYLCELLULOSE SODIUM
  2. DUREZOL [Concomitant]
     Active Substance: DIFLUPREDNATE
  3. LOTEMAX [Suspect]
     Active Substance: LOTEPREDNOL ETABONATE
     Indication: TRANSPLANT REJECTION
     Dosage: 4 TIMES A DAY
     Route: 047
     Dates: start: 20161012, end: 20161014
  4. FISH OIL [Concomitant]
     Active Substance: FISH OIL

REACTIONS (4)
  - Anxiety [None]
  - Hypersensitivity [None]
  - Nasal congestion [None]
  - Headache [None]

NARRATIVE: CASE EVENT DATE: 20161014
